FAERS Safety Report 21378822 (Version 1)
Quarter: 2022Q3

REPORT INFORMATION
  Report Type: Spontaneous
  Country: DE (occurrence: DE)
  Receive Date: 20220927
  Receipt Date: 20220927
  Transmission Date: 20221027
  Serious: Yes (Hospitalization, Other)
  Sender: FDA-Public Use
  Company Number: DE-ADRED-07844-01

PATIENT
  Age: 66 Year
  Sex: Female
  Weight: 100 kg

DRUGS (3)
  1. RAMIPRIL [Interacting]
     Active Substance: RAMIPRIL
     Indication: Product used for unknown indication
     Dosage: 5 MILLIGRAM (1-0-0-0, TABLETTEN )
     Route: 048
  2. ETORICOXIB [Interacting]
     Active Substance: ETORICOXIB
     Indication: Product used for unknown indication
     Dosage: 90 MILLIGRAM 90 MG, BEDARF, TABLETTEN()
     Route: 048
  3. SIMVASTATIN [Concomitant]
     Active Substance: SIMVASTATIN
     Indication: Product used for unknown indication
     Dosage: 40 MILLIGRAM (40 MG, 0-0-1-0, TABLETTEN)
     Route: 048

REACTIONS (6)
  - Angina pectoris [Unknown]
  - Pain [Unknown]
  - Labelled drug-drug interaction medication error [Unknown]
  - Dyspnoea [Unknown]
  - Hypertension [Unknown]
  - Oedema peripheral [Unknown]
